FAERS Safety Report 15893664 (Version 1)
Quarter: 2019Q1

REPORT INFORMATION
  Report Type: Spontaneous
  Country: FR (occurrence: FR)
  Receive Date: 20190131
  Receipt Date: 20190131
  Transmission Date: 20190417
  Serious: Yes (Other)
  Sender: FDA-Public Use
  Company Number: FR-AUROBINDO-AUR-APL-2019-003974

PATIENT
  Age: 3 Year
  Sex: Female
  Weight: 16 kg

DRUGS (4)
  1. MIDAZOLAM [Suspect]
     Active Substance: MIDAZOLAM HYDROCHLORIDE
     Indication: ANAESTHETIC PREMEDICATION
     Dosage: UNK
     Route: 042
     Dates: start: 20091106, end: 20091106
  2. CARBOCISTEINE [Suspect]
     Active Substance: CARBOCYSTEINE
     Indication: PHARYNGITIS
     Dosage: 10 MILLILITER, DAILY
     Route: 048
     Dates: start: 20091031, end: 20091104
  3. ATROPINE. [Suspect]
     Active Substance: ATROPINE
     Indication: ANAESTHETIC PREMEDICATION
     Dosage: UNK
     Route: 042
     Dates: start: 20091106, end: 20091106
  4. AMOXICILLIN. [Suspect]
     Active Substance: AMOXICILLIN
     Indication: PHARYNGITIS
     Dosage: 750 MILLIGRAM, DAILY
     Route: 048
     Dates: start: 20091031, end: 20091104

REACTIONS (2)
  - Angioedema [Recovered/Resolved]
  - Urticaria [Recovered/Resolved]

NARRATIVE: CASE EVENT DATE: 20091107
